FAERS Safety Report 9673377 (Version 2)
Quarter: 2013Q4

REPORT INFORMATION
  Report Type: Spontaneous
  Country: US (occurrence: US)
  Receive Date: 20131106
  Receipt Date: 20131106
  Transmission Date: 20140711
  Serious: No
  Sender: FDA-Public Use
  Company Number: US-AMGEN-USASP2013069224

PATIENT
  Age: 44 Year
  Sex: Male
  Weight: 104 kg

DRUGS (14)
  1. ENBREL [Suspect]
     Indication: PRODUCT USED FOR UNKNOWN INDICATION
     Dosage: UNK
     Route: 065
  2. XELJANZ [Suspect]
     Indication: PRODUCT USED FOR UNKNOWN INDICATION
     Dosage: 5 MG, BID
     Route: 048
  3. TYLENOL W/CODEINE [Concomitant]
     Dosage: UNK
     Route: 065
  4. FENOFIBRATE [Concomitant]
     Dosage: 130 MG, UNK
     Route: 065
  5. LOSARTAN POTASSIUM [Concomitant]
     Dosage: 100 MG, UNK
     Route: 065
  6. CYMBALTA [Concomitant]
     Dosage: 20 MG, UNK
     Route: 065
  7. PREDNISONE [Concomitant]
     Dosage: 2.5 MG, UNK
     Route: 065
  8. METHOTREXATE [Concomitant]
     Dosage: 25 MG, UNK
     Route: 065
  9. ANDROGEL [Concomitant]
     Dosage: GEL PUMP 1 %, UNK
     Route: 065
  10. HALOBETASOL PROP [Concomitant]
     Dosage: 0.05 %, UNK
     Route: 065
  11. FISH OIL [Concomitant]
     Dosage: UNK
     Route: 065
  12. FOLIC ACID [Concomitant]
     Dosage: UNK
     Route: 065
  13. VITAMIN D3 [Concomitant]
     Dosage: 10000 UNIT, UNK
     Route: 065
  14. NASONEX [Concomitant]
     Dosage: 50 MUG, UNK
     Route: 065

REACTIONS (2)
  - Joint swelling [Unknown]
  - Drug hypersensitivity [Unknown]
